FAERS Safety Report 15249104 (Version 1)
Quarter: 2018Q4

REPORT INFORMATION
  Report Type: Spontaneous
  Country: PT (occurrence: PT)
  Receive Date: 20180807
  Receipt Date: 20180807
  Transmission Date: 20190204
  Serious: Yes (Hospitalization, Other)
  Sender: FDA-Public Use
  Company Number: PT-TEVA-2018-PT-937982

PATIENT
  Age: 27 Year
  Sex: Female

DRUGS (4)
  1. OLANZAPINE. [Suspect]
     Active Substance: OLANZAPINE
     Dosage: 10 MILLIGRAM DAILY;
     Route: 065
  2. SALMETEROL/FLUTICASONE PROPIONATE 50/250 MCG [Suspect]
     Active Substance: FLUTICASONE PROPIONATE\SALMETEROL XINAFOATE
     Indication: INFLUENZA LIKE ILLNESS
     Dosage: 1 DOSAGE FORM= (50 MCG SALMETEROL+250 MCG FLUTICASONE PROPIONATE)
     Route: 055
  3. ACETAMINOPHEN. [Concomitant]
     Active Substance: ACETAMINOPHEN
     Route: 042
  4. BUDESONIDE. [Suspect]
     Active Substance: BUDESONIDE
     Indication: COUGH
     Route: 055

REACTIONS (5)
  - Weight decreased [Recovered/Resolved]
  - Intentional product misuse [Unknown]
  - Delirium [Recovered/Resolved]
  - Drug use disorder [Recovered/Resolved]
  - Somnolence [Recovered/Resolved]
